FAERS Safety Report 5531139-5 (Version None)
Quarter: 2007Q4

REPORT INFORMATION
  Report Type: 
  Country: None (occurrence: None)
  Receive Date: 20071130
  Receipt Date: 20071118
  Transmission Date: 20080405
  Serious: Yes (Other)
  Sender: FDA-Public Use
  Company Number: US-PFIZER INC-2007098628

PATIENT

DRUGS (1)
  1. CHANTIX [Suspect]

REACTIONS (2)
  - HYPERTENSION [None]
  - OEDEMA [None]
